FAERS Safety Report 9593085 (Version 2)
Quarter: 2013Q4

REPORT INFORMATION
  Report Type: Spontaneous
  Country: CO (occurrence: CO)
  Receive Date: 20131004
  Receipt Date: 20131017
  Transmission Date: 20140711
  Serious: Yes (Hospitalization, Other)
  Sender: FDA-Public Use
  Company Number: CO-AMGEN-COLSP2013069777

PATIENT
  Age: 39 Year
  Sex: Male

DRUGS (2)
  1. ENBREL [Suspect]
     Indication: ANKYLOSING SPONDYLITIS
     Dosage: 50 MG, WEEKLY
     Route: 058
     Dates: start: 201305, end: 20130905
  2. ISONIAZID [Concomitant]
     Indication: LATENT TUBERCULOSIS
     Dosage: UNK
     Route: 048
     Dates: start: 201305, end: 20130905

REACTIONS (3)
  - Somnolence [Not Recovered/Not Resolved]
  - Hepatitis toxic [Not Recovered/Not Resolved]
  - Hepatitis [Not Recovered/Not Resolved]
